FAERS Safety Report 19389319 (Version 1)
Quarter: 2021Q2

REPORT INFORMATION
  Report Type: Report from Study
  Country: None (occurrence: LB)
  Receive Date: 20210607
  Receipt Date: 20210607
  Transmission Date: 20210717
  Serious: Yes (Hospitalization)
  Sender: FDA-Public Use
  Company Number: LB-ABBVIE-21K-093-3932432-00

PATIENT
  Age: 23 Year
  Sex: Female

DRUGS (8)
  1. HUMIRA [Suspect]
     Active Substance: ADALIMUMAB
     Indication: CROHN^S DISEASE
     Dosage: 160MG LOADING DOSE
     Route: 058
     Dates: start: 20181109, end: 20181109
  2. HUMIRA [Suspect]
     Active Substance: ADALIMUMAB
     Route: 058
     Dates: start: 20181220, end: 201907
  3. Z PRO [Concomitant]
     Indication: PROBIOTIC THERAPY
     Route: 065
  4. HUMIRA [Suspect]
     Active Substance: ADALIMUMAB
     Dosage: 80MG LOADING DOSE
     Route: 058
     Dates: start: 20181123, end: 20181123
  5. HUMIRA [Suspect]
     Active Substance: ADALIMUMAB
     Dosage: 80MG LOADING DOSE
     Route: 058
     Dates: start: 20181206, end: 20181206
  6. HUMIRA [Suspect]
     Active Substance: ADALIMUMAB
     Indication: CROHN^S DISEASE
     Route: 058
     Dates: start: 201907, end: 202005
  7. HUMIRA [Suspect]
     Active Substance: ADALIMUMAB
     Route: 058
     Dates: start: 20200610, end: 202009
  8. HUMIRA [Suspect]
     Active Substance: ADALIMUMAB
     Route: 058
     Dates: start: 20201006

REACTIONS (3)
  - Morning sickness [Unknown]
  - Maternal exposure during pregnancy [Unknown]
  - Premature labour [Recovered/Resolved]

NARRATIVE: CASE EVENT DATE: 202105
